FAERS Safety Report 6658171-2 (Version None)
Quarter: 2010Q1

REPORT INFORMATION
  Report Type: 
  Country: None (occurrence: None)
  Receive Date: 20100330
  Receipt Date: 20100322
  Transmission Date: 20100710
  Serious: Yes (Hospitalization)
  Sender: FDA-Public Use
  Company Number: B0640605A

PATIENT
  Sex: Female

DRUGS (2)
  1. LAPATINIB [Suspect]
     Indication: BREAST CANCER
     Dosage: 125MG PER DAY
     Dates: start: 20100226, end: 20100308
  2. DOCETAXEL [Suspect]
     Indication: BREAST CANCER
     Dosage: 150MG EVERY 3 WEEKS
     Dates: start: 20100226, end: 20100226

REACTIONS (3)
  - DIARRHOEA [None]
  - RASH PAPULAR [None]
  - TOXIC SKIN ERUPTION [None]
